FAERS Safety Report 17386203 (Version 2)
Quarter: 2020Q1

REPORT INFORMATION
  Report Type: Spontaneous
  Country: DE (occurrence: DE)
  Receive Date: 20200206
  Receipt Date: 20200210
  Transmission Date: 20200409
  Serious: Yes (Other)
  Sender: FDA-Public Use
  Company Number: DE-ASTRAZENECA-2020SE18204

PATIENT
  Sex: Female

DRUGS (13)
  1. ULTIBRO [Concomitant]
     Active Substance: GLYCOPYRRONIUM\INDACATEROL
  2. ALVESCO [Concomitant]
     Active Substance: CICLESONIDE
     Dosage: 160.0UG UNKNOWN
  3. ATORVASTATIN [Concomitant]
     Active Substance: ATORVASTATIN
  4. NEUREXAN [Concomitant]
     Active Substance: HOMEOPATHICS
  5. CANDESARTAN. [Concomitant]
     Active Substance: CANDESARTAN
  6. SELENIUM [Concomitant]
     Active Substance: SELENIUM
  7. L-THYROXIN [Concomitant]
     Active Substance: LEVOTHYROXINE SODIUM
     Dosage: 100 MICROGRAMS
  8. SALBUTAMOL [Concomitant]
     Active Substance: ALBUTEROL
  9. VITAMIN D [Concomitant]
     Active Substance: VITAMIN D NOS
  10. DAXAS [Suspect]
     Active Substance: ROFLUMILAST
     Indication: CHRONIC OBSTRUCTIVE PULMONARY DISEASE
     Dosage: 500.0MG UNKNOWN
     Route: 048
  11. ACETYLSALICYLIC ACID [Concomitant]
     Active Substance: ASPIRIN
  12. DAXAS [Suspect]
     Active Substance: ROFLUMILAST
     Indication: CHRONIC OBSTRUCTIVE PULMONARY DISEASE
     Route: 048
     Dates: start: 201908
  13. VALSARTAN. [Concomitant]
     Active Substance: VALSARTAN

REACTIONS (13)
  - Anxiety [Unknown]
  - Vascular occlusion [Unknown]
  - Nausea [Unknown]
  - Headache [Unknown]
  - Diarrhoea [Unknown]
  - Decreased appetite [Unknown]
  - Visual impairment [Unknown]
  - Weight decreased [Unknown]
  - Gamma-glutamyltransferase increased [Unknown]
  - Palpitations [Unknown]
  - Insomnia [Unknown]
  - Pulmonary arterial hypertension [Unknown]
  - Dizziness [Unknown]
